FAERS Safety Report 7931606-0 (Version None)
Quarter: 2011Q4

REPORT INFORMATION
  Report Type: 
  Country: None (occurrence: None)
  Receive Date: 20111121
  Receipt Date: 20111111
  Transmission Date: 20120403
  Serious: Yes (Other)
  Sender: FDA-Public Use
  Company Number: US-BAYER-2011-075257

PATIENT
  Age: 31 Year
  Sex: Female
  Weight: 108.84 kg

DRUGS (12)
  1. LEVOXYL [Concomitant]
     Indication: HYPOTHYROIDISM
     Dosage: UNK
     Dates: start: 19940101
  2. ACETAMINOPHEN [Concomitant]
     Indication: PAIN
     Dosage: 200 MG, QD
     Dates: start: 20090801
  3. METFORMIN HCL [Concomitant]
  4. DROSPIRENONE AND ETHINYL ESTRADIOL [Suspect]
     Dosage: UNK
     Dates: start: 20090524, end: 20090726
  5. VITAMIN B-12 [Concomitant]
     Indication: VITAMIN B12 DEFICIENCY
     Dosage: UNK
     Dates: start: 20090501
  6. VITAMIN D [Concomitant]
     Indication: VITAMIN D DEFICIENCY
     Dosage: UNK
     Dates: start: 20090501
  7. YASMIN [Suspect]
     Indication: CONTRACEPTION
     Dosage: UNK
     Dates: start: 20070329, end: 20080131
  8. OPTISOURCE VITAMINS [Concomitant]
     Dosage: UNK UNK, BID
     Dates: start: 20050301, end: 20100101
  9. YASMIN [Suspect]
     Dosage: UNK
     Dates: start: 20090524, end: 20090726
  10. YAZ [Suspect]
     Indication: CONTRACEPTION
     Dosage: UNK
     Dates: start: 20070329, end: 20080131
  11. DROSPIRENONE AND ETHINYL ESTRADIOL [Suspect]
     Indication: CONTRACEPTION
     Dosage: UNK
     Dates: start: 20070329, end: 20080131
  12. YAZ [Suspect]
     Dosage: UNK
     Dates: start: 20090524, end: 20090726

REACTIONS (4)
  - EMOTIONAL DISTRESS [None]
  - DEEP VEIN THROMBOSIS [None]
  - PAIN [None]
  - PHLEBITIS SUPERFICIAL [None]
